FAERS Safety Report 6055911-0 (Version None)
Quarter: 2009Q1

REPORT INFORMATION
  Report Type: 
  Country: None (occurrence: None)
  Receive Date: 20090128
  Receipt Date: 20090119
  Transmission Date: 20090719
  Serious: Yes (Hospitalization)
  Sender: FDA-Public Use
  Company Number: PHHY2009AU02090

PATIENT
  Sex: Female

DRUGS (2)
  1. ESTRADERM [Suspect]
     Route: 062
  2. ESTRADIOL [Suspect]
     Dosage: UNK

REACTIONS (4)
  - HEADACHE [None]
  - LOSS OF CONSCIOUSNESS [None]
  - MIGRAINE [None]
  - VOMITING [None]
